FAERS Safety Report 10903706 (Version 1)
Quarter: 2015Q1

REPORT INFORMATION
  Report Type: Spontaneous
  Country: GB (occurrence: GB)
  Receive Date: 20150311
  Receipt Date: 20150311
  Transmission Date: 20150721
  Serious: Yes (Other)
  Sender: FDA-Public Use
  Company Number: GB-TEVA-545268ACC

PATIENT
  Sex: Female

DRUGS (17)
  1. CITALOPRAM [Suspect]
     Active Substance: CITALOPRAM HYDROBROMIDE
     Dosage: 30 MG IN THE MORNING
     Route: 065
  2. MOMETASONE [Concomitant]
     Active Substance: MOMETASONE
     Indication: PRODUCT USED FOR UNKNOWN INDICATION
     Dosage: 2 DOSAGE FORMS DAILY; 2 SPRAYS DAILY
     Route: 045
  3. LYRICA [Suspect]
     Active Substance: PREGABALIN
     Indication: PERIODIC LIMB MOVEMENT DISORDER
     Dosage: 150 MG, UNK
     Route: 065
  4. TEGRETOL [Suspect]
     Active Substance: CARBAMAZEPINE
     Indication: EPILEPSY
     Dosage: 1200 MG, UNK (400 MG IN MORNING AND 800 MG AT NIGHT); MODIFIED RELEASE TABLET
     Route: 065
  5. FERROUS FUMARATE [Concomitant]
     Active Substance: FERROUS FUMARATE
     Indication: PRODUCT USED FOR UNKNOWN INDICATION
     Dosage: 3 DOSAGE FORMS DAILY; 1 DF, TID
     Route: 065
  6. LAMICTAL [Suspect]
     Active Substance: LAMOTRIGINE
     Dosage: 500 MILLIGRAM DAILY; 250 MG, BID
     Route: 065
  7. LAMICTAL [Suspect]
     Active Substance: LAMOTRIGINE
     Indication: EPILEPSY
     Dosage: 2 DOSAGE FORMS DAILY; 50 MG TABLET (1 IN MORNING AND 1 IN EVENING); DAILY DOSE: 2 DOSAGE FORMS
     Route: 065
  8. LAMICTAL [Suspect]
     Active Substance: LAMOTRIGINE
     Dosage: 500 MILLIGRAM DAILY; 500 MG, QD
     Route: 065
  9. LAMICTAL [Suspect]
     Active Substance: LAMOTRIGINE
     Dosage: 4 DOSAGE FORMS DAILY; 100 MG TABLET (2 EVERY MORNING AND 2 EVERY EVENING)
     Route: 065
  10. CITALOPRAM [Suspect]
     Active Substance: CITALOPRAM HYDROBROMIDE
     Indication: PRODUCT USED FOR UNKNOWN INDICATION
     Dosage: 10 MG, UNK
     Route: 065
     Dates: start: 201303
  11. CITALOPRAM [Suspect]
     Active Substance: CITALOPRAM HYDROBROMIDE
     Dosage: 20 MILLIGRAM DAILY; 20 MG, QD
     Route: 065
  12. LYRICA [Suspect]
     Active Substance: PREGABALIN
     Dosage: 300 MG, UNK
     Route: 065
  13. CYCLOGEST [Concomitant]
     Active Substance: PROGESTERONE
     Indication: PRODUCT USED FOR UNKNOWN INDICATION
     Dosage: 1 DOSAGE FORMS DAILY; 1 DF, QD
     Route: 065
  14. CITALOPRAM [Suspect]
     Active Substance: CITALOPRAM HYDROBROMIDE
     Dosage: 40 MG, UNK
     Route: 065
  15. CITALOPRAM [Suspect]
     Active Substance: CITALOPRAM HYDROBROMIDE
     Dosage: 3 DOSAGE FORMS DAILY; 10 MG TABLET (30 MG A DAY); DAILY DOSE: 3 DOSAGE FORMS
     Route: 065
     Dates: end: 201208
  16. KEPPRA [Suspect]
     Active Substance: LEVETIRACETAM
     Indication: EPILEPSY
     Dosage: 1 DOSAGE FORMS DAILY; 1 DF, QD (250 MG); DAILY DOSE: 1 DOSAGE FORM
     Route: 065
  17. LAMICTAL [Suspect]
     Active Substance: LAMOTRIGINE
     Dosage: 550 MILLIGRAM DAILY; 550 MG, QD
     Route: 065

REACTIONS (13)
  - Depression [Unknown]
  - Initial insomnia [Unknown]
  - Temporal lobe epilepsy [Unknown]
  - Anxiety [Unknown]
  - Insomnia [Unknown]
  - Periodic limb movement disorder [Unknown]
  - Cognitive disorder [Unknown]
  - Seizure [Unknown]
  - Sleep disorder [Unknown]
  - Hippocampal sclerosis [Unknown]
  - Osteopenia [Unknown]
  - Aura [Unknown]
  - Middle insomnia [Unknown]
